FAERS Safety Report 10766125 (Version 4)
Quarter: 2017Q3

REPORT INFORMATION
  Report Type: Spontaneous
  Country: US (occurrence: US)
  Receive Date: 20150205
  Receipt Date: 20170929
  Transmission Date: 20171127
  Serious: No
  Sender: FDA-Public Use
  Company Number: US-ELI_LILLY_AND_COMPANY-US201501009464

PATIENT
  Age: 67 Year
  Sex: Female

DRUGS (5)
  1. HUMALOG [Suspect]
     Active Substance: INSULIN LISPRO
     Indication: TYPE 2 DIABETES MELLITUS
     Dosage: 2 U, PRN
     Route: 065
     Dates: start: 20150123
  2. HUMALOG [Suspect]
     Active Substance: INSULIN LISPRO
     Dosage: UNK UNK, UNKNOWN
     Route: 065
  3. HUMALOG KWIKPEN [Suspect]
     Active Substance: INSULIN LISPRO
     Indication: TYPE 2 DIABETES MELLITUS
     Dosage: UNK, UNKNOWN
     Route: 058
     Dates: start: 201708
  4. HUMALOG [Suspect]
     Active Substance: INSULIN LISPRO
     Dosage: 3 U, OTHER
     Route: 065
  5. METFORMIN [Concomitant]
     Active Substance: METFORMIN HYDROCHLORIDE
     Indication: PRODUCT USED FOR UNKNOWN INDICATION

REACTIONS (18)
  - Injection site warmth [Unknown]
  - Feeling hot [Unknown]
  - Incorrect dose administered [Unknown]
  - Incorrect drug administration duration [Not Recovered/Not Resolved]
  - Headache [Unknown]
  - Injection site haemorrhage [Unknown]
  - Hypoglycaemia [Unknown]
  - Malaise [Unknown]
  - Abdominal discomfort [Unknown]
  - Vomiting [Unknown]
  - Dizziness [Unknown]
  - Nervousness [Unknown]
  - Dizziness [Unknown]
  - Fatigue [Unknown]
  - Blood glucose decreased [Unknown]
  - Blood glucose increased [Unknown]
  - Inappropriate schedule of drug administration [Unknown]
  - Tremor [Unknown]

NARRATIVE: CASE EVENT DATE: 201502
